FAERS Safety Report 10215180 (Version 1)
Quarter: 2014Q2

REPORT INFORMATION
  Report Type: Spontaneous
  Country: NL (occurrence: NL)
  Receive Date: 20140603
  Receipt Date: 20140603
  Transmission Date: 20141212
  Serious: Yes (Death, Hospitalization)
  Sender: FDA-Public Use
  Company Number: PHHY2014NL063730

PATIENT
  Age: 70 Year
  Sex: Female

DRUGS (2)
  1. OXALIPLATIN [Suspect]
     Indication: RECTAL CANCER
  2. CAPECITABINE [Concomitant]
     Indication: RECTAL CANCER

REACTIONS (13)
  - Death [Fatal]
  - Multi-organ failure [Unknown]
  - Intestinal ulcer [Unknown]
  - Sepsis [Unknown]
  - Respiratory failure [Unknown]
  - Hepatic failure [Unknown]
  - Ascites [Unknown]
  - Hypokalaemia [Unknown]
  - Metabolic acidosis [Unknown]
  - Renal failure [Unknown]
  - Mucosal inflammation [Unknown]
  - Thrombocytopenia [Unknown]
  - Intestinal haemorrhage [Unknown]
